FAERS Safety Report 15137975 (Version 2)
Quarter: 2018Q3

REPORT INFORMATION
  Report Type: Spontaneous
  Country: US (occurrence: US)
  Receive Date: 20180712
  Receipt Date: 20180823
  Transmission Date: 20181010
  Serious: No
  Sender: FDA-Public Use
  Company Number: US-ASTRAZENECA-2017SE78442

PATIENT
  Age: 804 Month
  Sex: Male
  Weight: 117.9 kg

DRUGS (2)
  1. BYDUREON BCISE [Suspect]
     Active Substance: EXENATIDE
     Indication: TYPE 2 DIABETES MELLITUS
     Route: 058
     Dates: start: 201805
  2. BYDUREON [Suspect]
     Active Substance: EXENATIDE
     Indication: TYPE 2 DIABETES MELLITUS
     Route: 058
     Dates: start: 201706

REACTIONS (10)
  - Loss of consciousness [Unknown]
  - Device malfunction [Unknown]
  - Intentional product misuse [Unknown]
  - Underdose [Unknown]
  - Needle issue [Unknown]
  - Blood glucose increased [Recovered/Resolved]
  - Fall [Unknown]
  - Needle issue [Unknown]
  - Feeling abnormal [Recovered/Resolved]
  - Device failure [Unknown]

NARRATIVE: CASE EVENT DATE: 201706
